FAERS Safety Report 6787902-6 (Version None)
Quarter: 2010Q2

REPORT INFORMATION
  Report Type: 
  Country: None (occurrence: None)
  Receive Date: 20100623
  Receipt Date: 20070919
  Transmission Date: 20101027
  Serious: Yes (Other)
  Sender: FDA-Public Use
  Company Number: US-PFIZER INC-2007079097

PATIENT
  Sex: Female
  Weight: 61.2 kg

DRUGS (3)
  1. DEPO-SUBQ PROVERA 104 [Suspect]
     Indication: CONTRACEPTION
     Dosage: FIRST INJECTION, EVERY THREE MONTHS
     Route: 058
     Dates: start: 20061201, end: 20061201
  2. DEPO-SUBQ PROVERA 104 [Suspect]
     Dosage: MOST RECENT INJECTION
     Route: 058
     Dates: start: 20070601, end: 20070601
  3. VALTREX [Concomitant]

REACTIONS (1)
  - INJECTION SITE ATROPHY [None]
